FAERS Safety Report 21584329 (Version 1)
Quarter: 2022Q4

REPORT INFORMATION
  Report Type: Spontaneous
  Country: US (occurrence: None)
  Receive Date: 20221110
  Receipt Date: 20221110
  Transmission Date: 20230113
  Serious: No
  Sender: FDA-Public Use
  Company Number: None

PATIENT
  Sex: Female
  Weight: 62.32 kg

DRUGS (21)
  1. LENALIDOMIDE [Suspect]
     Active Substance: LENALIDOMIDE
     Indication: Plasma cell myeloma
     Dosage: 4MG QD 21 ON 7 OFF ORAL?
     Route: 048
  2. BACTRIM DS [Concomitant]
     Active Substance: SULFAMETHOXAZOLE\TRIMETHOPRIM
  3. MIRALAX [Concomitant]
     Active Substance: POLYETHYLENE GLYCOL 3350
  4. PROCHLORPERAZINE MALEATE [Concomitant]
     Active Substance: PROCHLORPERAZINE MALEATE
  5. PATOPRAZOLE SODIUM [Concomitant]
  6. OXYCODONE HYDROCHLORIDE [Concomitant]
     Active Substance: OXYCODONE HYDROCHLORIDE
  7. MELATONIN [Concomitant]
     Active Substance: MELATONIN
  8. LIDODERM [Concomitant]
     Active Substance: LIDOCAINE
  9. FAMOTIDINE [Concomitant]
     Active Substance: FAMOTIDINE
  10. DOCUSATE SODIUM [Concomitant]
     Active Substance: DOCUSATE SODIUM
  11. DEXAMETHASONE [Concomitant]
     Active Substance: DEXAMETHASONE
  12. ACYCLOVIR [Concomitant]
     Active Substance: ACYCLOVIR
  13. ACETEMINOPHEN [Concomitant]
  14. ASPIRIN [Concomitant]
     Active Substance: ASPIRIN
  15. COLCHICINE [Concomitant]
     Active Substance: COLCHICINE
  16. KRISTALOSE [Concomitant]
     Active Substance: LACTULOSE
  17. MORPHINE SULFATE [Concomitant]
     Active Substance: MORPHINE SULFATE
  18. LACTULOSE [Concomitant]
     Active Substance: LACTULOSE
  19. MIRTAZAPINE [Concomitant]
     Active Substance: MIRTAZAPINE
  20. CIPROFLOXACIN HYDROCHLORIDE [Concomitant]
     Active Substance: CIPROFLOXACIN HYDROCHLORIDE
  21. VANCOMYCIN HYDROCHLORIDE [Concomitant]
     Active Substance: VANCOMYCIN HYDROCHLORIDE

REACTIONS (1)
  - Peripheral swelling [None]
